FAERS Safety Report 23268921 (Version 3)
Quarter: 2024Q1

REPORT INFORMATION
  Report Type: Spontaneous
  Country: JP (occurrence: JP)
  Receive Date: 20231206
  Receipt Date: 20240323
  Transmission Date: 20240410
  Serious: Yes (Hospitalization, Other)
  Sender: FDA-Public Use
  Company Number: JP-MOCHP-A20234919

PATIENT
  Age: 28 Year
  Sex: Male
  Weight: 66 kg

DRUGS (6)
  1. LEXAPRO [Suspect]
     Active Substance: ESCITALOPRAM OXALATE
     Indication: Anxiety
     Route: 048
     Dates: start: 20210712, end: 20230618
  2. LEXAPRO [Suspect]
     Active Substance: ESCITALOPRAM OXALATE
     Indication: Anxiety
     Route: 048
  3. IMATINIB [Suspect]
     Active Substance: IMATINIB
     Indication: Anxiety
     Route: 048
     Dates: start: 20230523
  4. ESOMEPRAZOLE [Concomitant]
     Active Substance: ESOMEPRAZOLE
     Indication: Gastric ulcer
     Route: 065
     Dates: start: 20230529, end: 20230920
  5. QUETIAPINE FUMARATE [Concomitant]
     Active Substance: QUETIAPINE FUMARATE
     Indication: Depression
     Route: 065
  6. PEROSPIRONE HYDROCHLORIDE [Concomitant]
     Active Substance: PEROSPIRONE HYDROCHLORIDE
     Indication: Anxiety
     Dosage: TIME INTERVAL: AS NECESSARY
     Route: 048
     Dates: start: 2021

REACTIONS (3)
  - Chronic myeloid leukaemia [Recovered/Resolved]
  - Priapism [Recovering/Resolving]
  - Drug interaction [Recovering/Resolving]

NARRATIVE: CASE EVENT DATE: 20230605
